FAERS Safety Report 10192887 (Version 2)
Quarter: 2014Q2

REPORT INFORMATION
  Report Type: Spontaneous
  Country: IT (occurrence: IT)
  Receive Date: 20140523
  Receipt Date: 20140523
  Transmission Date: 20141212
  Serious: Yes (Hospitalization)
  Sender: FDA-Public Use
  Company Number: IT-ABBVIE-14P-083-1211899-00

PATIENT
  Age: 78 Year
  Sex: Female

DRUGS (13)
  1. HUMIRA [Suspect]
     Indication: RHEUMATOID ARTHRITIS
     Route: 058
     Dates: start: 20130111, end: 201312
  2. METHOTREXATE [Suspect]
     Indication: PRODUCT USED FOR UNKNOWN INDICATION
     Route: 030
     Dates: start: 20050125, end: 20131231
  3. DELTACORTENE [Concomitant]
     Indication: RHEUMATOID ARTHRITIS
     Route: 048
     Dates: start: 20050101
  4. DELTACORTENE [Concomitant]
     Dosage: AFTER BREAKFAST
     Route: 048
  5. BASSADO [Concomitant]
     Indication: PRODUCT USED FOR UNKNOWN INDICATION
     Dosage: 1 TABLET AT 08:00AM
  6. LIMPIDEX [Concomitant]
     Indication: PRODUCT USED FOR UNKNOWN INDICATION
     Dosage: 30MIN BEFORE BREAKFAST
  7. FLUIMUCIL [Concomitant]
     Indication: PRODUCT USED FOR UNKNOWN INDICATION
     Dosage: FOR 10 DAYS PER MONTH
  8. ALENDROS [Concomitant]
     Indication: PRODUCT USED FOR UNKNOWN INDICATION
  9. DIBASE [Concomitant]
     Indication: PRODUCT USED FOR UNKNOWN INDICATION
  10. TARGIN [Concomitant]
     Indication: PRODUCT USED FOR UNKNOWN INDICATION
     Dosage: 5+2.5MG TABLET: 1 TABLET ON EVENING
  11. TAREG [Concomitant]
     Indication: PRODUCT USED FOR UNKNOWN INDICATION
     Dosage: 1 TABLET AT 08:00 AM
  12. CARDICOR [Concomitant]
     Indication: PRODUCT USED FOR UNKNOWN INDICATION
     Dosage: 1 TAB AT 08:00AM AND 1 TAB AT 08:00 PM
  13. LASIX [Concomitant]
     Indication: PRODUCT USED FOR UNKNOWN INDICATION
     Dosage: 1 TAB AT 10 AM

REACTIONS (28)
  - General physical health deterioration [Unknown]
  - Pulmonary tuberculosis [Unknown]
  - Herpes simplex [Unknown]
  - Pyrexia [Unknown]
  - Nausea [Unknown]
  - Vomiting [Unknown]
  - Cough [Unknown]
  - Musculoskeletal pain [Unknown]
  - Brucellosis [Unknown]
  - Pulmonary fibrosis [Unknown]
  - Acute respiratory failure [Unknown]
  - Pulmonary embolism [Unknown]
  - Pyrexia [Unknown]
  - General physical health deterioration [Unknown]
  - Pyrexia [Unknown]
  - General physical health deterioration [Unknown]
  - Nausea [Unknown]
  - Pneumonitis [Unknown]
  - Spleen disorder [Unknown]
  - Hepatic cyst [Unknown]
  - Haemangioma of liver [Unknown]
  - Dilatation intrahepatic duct acquired [Unknown]
  - Adnexa uteri cyst [Unknown]
  - Diverticulum intestinal [Unknown]
  - Diverticulum intestinal [Unknown]
  - Thrombosis [Unknown]
  - Thrombosis [Unknown]
  - Tricuspid valve incompetence [Unknown]
